FAERS Safety Report 7360959-X (Version None)
Quarter: 2011Q1

REPORT INFORMATION
  Report Type: 
  Country: None (occurrence: None)
  Receive Date: 20110318
  Receipt Date: 20110307
  Transmission Date: 20110831
  Serious: Yes (Hospitalization, Other)
  Sender: FDA-Public Use
  Company Number: JP-PFIZER INC-2010028823

PATIENT
  Age: 74 Year
  Sex: Female
  Weight: 56 kg

DRUGS (10)
  1. FLUOROURACIL [Suspect]
     Dosage: 3000 MG, UNK
     Route: 041
     Dates: start: 20100127, end: 20100127
  2. FLUOROURACIL [Suspect]
     Dosage: 500 MG, UNK
     Route: 040
     Dates: start: 20100127, end: 20100127
  3. CALCIUM LEVOFOLINATE [Concomitant]
     Indication: COLORECTAL CANCER
     Dosage: 300 MG, UNK
     Route: 041
     Dates: start: 20100107, end: 20100622
  4. FLUOROURACIL [Suspect]
     Indication: COLORECTAL CANCER
     Dosage: 600 MG, UNK
     Route: 040
     Dates: start: 20100107, end: 20100107
  5. FLUOROURACIL [Suspect]
     Dosage: 400 MG, UNK
     Route: 040
     Dates: start: 20100217, end: 20100622
  6. FLUOROURACIL [Suspect]
     Dosage: 2500 MG, UNK
     Route: 041
     Dates: start: 20100217, end: 20100622
  7. FLUOROURACIL [Suspect]
     Dosage: 3500 MG, UNK
     Route: 041
     Dates: start: 20100107, end: 20100107
  8. IRINOTECAN HCL [Suspect]
     Dosage: 150 MG, UNK
     Route: 041
     Dates: start: 20100217, end: 20100622
  9. IRINOTECAN HCL [Suspect]
     Dosage: 180 MG, UNK
     Route: 041
     Dates: start: 20100127, end: 20100127
  10. IRINOTECAN HCL [Suspect]
     Indication: COLORECTAL CANCER
     Dosage: 220 MG, UNK
     Route: 041
     Dates: start: 20100107, end: 20100107

REACTIONS (4)
  - PYREXIA [None]
  - LEUKOPENIA [None]
  - HAEMOGLOBIN DECREASED [None]
  - NEUTROPENIA [None]
